FAERS Safety Report 4890848-1 (Version None)
Quarter: 2006Q1

REPORT INFORMATION
  Report Type: 
  Country: None (occurrence: None)
  Receive Date: 20060125
  Receipt Date: 20051219
  Transmission Date: 20060701
  Serious: Yes (Hospitalization)
  Sender: FDA-Public Use
  Company Number: 2005UW19111

PATIENT
  Age: 35 Year
  Sex: Male

DRUGS (6)
  1. SEROQUEL [Suspect]
     Indication: BIPOLAR I DISORDER
     Dosage: 500 MG - 600 MG
     Route: 048
  2. STRATTERA [Concomitant]
     Indication: ATTENTION DEFICIT/HYPERACTIVITY DISORDER
     Route: 048
     Dates: start: 20051011
  3. DEPAKOTE ER [Concomitant]
     Indication: BIPOLAR DISORDER
     Route: 048
     Dates: start: 20040720
  4. EFFEXOR XR [Concomitant]
     Indication: BIPOLAR DISORDER
     Route: 048
     Dates: start: 20051011
  5. EFFEXOR XR [Concomitant]
     Indication: DEPRESSION
     Route: 048
     Dates: start: 20051011
  6. EQUETRO [Concomitant]
     Route: 048

REACTIONS (11)
  - AGITATION [None]
  - ANXIETY [None]
  - BIPOLAR I DISORDER [None]
  - DRUG INEFFECTIVE [None]
  - DYSPHAGIA [None]
  - HEADACHE [None]
  - HUNGER [None]
  - HYPOMANIA [None]
  - INCREASED APPETITE [None]
  - PSYCHOTIC DISORDER [None]
  - SLEEP DISORDER [None]
